FAERS Safety Report 9498285 (Version 1)
Quarter: 2013Q3

REPORT INFORMATION
  Report Type: Spontaneous
  Country: IN (occurrence: IN)
  Receive Date: 20130904
  Receipt Date: 20130904
  Transmission Date: 20140515
  Serious: Yes (Other)
  Sender: FDA-Public Use
  Company Number: IN-ROCHE-1269430

PATIENT
  Age: 43 Year
  Sex: Female

DRUGS (15)
  1. RITUXIMAB [Suspect]
     Indication: B-CELL LYMPHOMA STAGE IV
     Dosage: 500CC NS OVER 2 HOURS
     Route: 042
     Dates: start: 20130423, end: 20130507
  2. VINCRISTIN [Suspect]
     Indication: B-CELL LYMPHOMA STAGE IV
     Route: 042
     Dates: start: 20130423, end: 20130507
  3. ADRIAMYCIN [Suspect]
     Indication: B-CELL LYMPHOMA STAGE IV
     Dosage: 250 CC NS OVER 20 MIN
     Route: 042
  4. PREDNISOLONE [Suspect]
     Indication: B-CELL LYMPHOMA STAGE IV
     Route: 065
  5. CYCLOPHOSPHAMIDE [Suspect]
     Indication: B-CELL LYMPHOMA STAGE IV
     Dosage: 500 CC NS OVER 1 HOUR
     Route: 065
     Dates: start: 20130423, end: 20130507
  6. APREPITANT [Concomitant]
     Indication: NAUSEA
     Dosage: ON 125 MG ON DAY 1 AND 80 MG ON DAY 2 + 3 BEFORE BREAKFAST
     Route: 048
  7. APREPITANT [Concomitant]
     Indication: VOMITING
  8. PALONOSETRON [Concomitant]
     Indication: NAUSEA
     Route: 042
  9. PALONOSETRON [Concomitant]
     Indication: VOMITING
  10. DECADRON [Concomitant]
     Indication: INFLAMMATION
     Dosage: 500CC NS OVER 1 HOUR ON DAY 1
     Route: 042
  11. RANTAC [Concomitant]
     Indication: ULCER
     Dosage: 500CC NS OVER 1 HOUR ON DAY 1
     Route: 042
  12. RANTAC [Concomitant]
     Indication: GASTROOESOPHAGEAL REFLUX DISEASE
  13. AVIL [Concomitant]
     Indication: HYPERSENSITIVITY
     Dosage: 2CC NS OVER 15 MIN ON DAY 1
     Route: 042
  14. NAHCO3 [Concomitant]
     Indication: DYSPEPSIA
     Dosage: 40CC OVER AN HOUR
     Route: 065
  15. EFCORLIN [Concomitant]
     Dosage: 100 CC NS OVER 15 MIN
     Route: 065

REACTIONS (8)
  - Monoparesis [Unknown]
  - Headache [Unknown]
  - Vomiting [Unknown]
  - Hemiplegia [Recovering/Resolving]
  - Blindness [Recovering/Resolving]
  - Eye movement disorder [Recovering/Resolving]
  - Monoplegia [Recovering/Resolving]
  - Hypertension [Recovering/Resolving]
